FAERS Safety Report 10654794 (Version 2)
Quarter: 2015Q1

REPORT INFORMATION
  Report Type: Spontaneous
  Country: US (occurrence: US)
  Receive Date: 20141216
  Receipt Date: 20150116
  Transmission Date: 20150720
  Serious: Yes (Death, Hospitalization, Other)
  Sender: FDA-Public Use
  Company Number: US-INCYTE CORPORATION-2014IN003848

PATIENT
  Age: 74 Year
  Sex: Female
  Weight: 50.79 kg

DRUGS (1)
  1. JAKAFI [Suspect]
     Active Substance: RUXOLITINIB
     Indication: MYELOPROLIFERATIVE DISORDER
     Dosage: 10 MG, BID
     Route: 048
     Dates: start: 20131120

REACTIONS (13)
  - Leukocytosis [Unknown]
  - Dyspnoea [Unknown]
  - Genital labial operation [Unknown]
  - Respiratory failure [Unknown]
  - Skin discolouration [Unknown]
  - Gastric perforation [Unknown]
  - Bacteraemia [Unknown]
  - Death [Fatal]
  - Haemorrhage [Unknown]
  - Splenomegaly [Unknown]
  - Abdominal sepsis [Unknown]
  - Post procedural discharge [Unknown]
  - Bladder catheterisation [Unknown]

NARRATIVE: CASE EVENT DATE: 201411
